FAERS Safety Report 25385506 (Version 1)
Quarter: 2025Q2

REPORT INFORMATION
  Report Type: Spontaneous
  Country: ES (occurrence: ES)
  Receive Date: 20250602
  Receipt Date: 20250602
  Transmission Date: 20250716
  Serious: Yes (Life-Threatening, Hospitalization)
  Sender: EMD SERONO INC
  Company Number: None

PATIENT
  Age: 83 Year
  Sex: Male
  Weight: 73 kg

DRUGS (3)
  1. BAVENCIO [Suspect]
     Active Substance: AVELUMAB
     Indication: Bladder transitional cell carcinoma
     Dosage: 20 MG/ML
     Dates: start: 20240523, end: 20240620
  2. CARBOPLATIN [Concomitant]
     Active Substance: CARBOPLATIN
     Indication: Bladder transitional cell carcinoma
     Dates: start: 20240115, end: 20240502
  3. GEMCITABINE HYDROCHLORIDE [Concomitant]
     Active Substance: GEMCITABINE HYDROCHLORIDE
     Indication: Bladder transitional cell carcinoma
     Dates: start: 20240115, end: 20240509

REACTIONS (3)
  - Myopathy [Recovering/Resolving]
  - Immune-mediated myocarditis [Recovered/Resolved]
  - Myalgia [Recovered/Resolved]

NARRATIVE: CASE EVENT DATE: 20240621
